FAERS Safety Report 6665584-1 (Version None)
Quarter: 2010Q2

REPORT INFORMATION
  Report Type: 
  Country: None (occurrence: None)
  Receive Date: 20100402
  Receipt Date: 20100324
  Transmission Date: 20101027
  Serious: Yes (Death, Hospitalization)
  Sender: FDA-Public Use
  Company Number: US-AMGEN-KDC401932

PATIENT
  Sex: Female
  Weight: 72.6 kg

DRUGS (1)
  1. ENBREL [Suspect]
     Indication: PSORIASIS
     Dates: start: 20080208, end: 20081111

REACTIONS (2)
  - DEATH [None]
  - OVERDOSE [None]
